FAERS Safety Report 24084449 (Version 1)
Quarter: 2024Q3

REPORT INFORMATION
  Report Type: Spontaneous
  Country: AE (occurrence: AE)
  Receive Date: 20240712
  Receipt Date: 20240712
  Transmission Date: 20241017
  Serious: Yes (Hospitalization, Other)
  Sender: BAYER
  Company Number: AE-BAYER-2024A098455

PATIENT
  Age: 38 Year
  Sex: Female

DRUGS (1)
  1. YAZ [Suspect]
     Active Substance: DROSPIRENONE\ETHINYL ESTRADIOL
     Dosage: 1 DF, QD
     Route: 048
     Dates: start: 20180410, end: 20240408

REACTIONS (2)
  - Pneumothorax [Recovered/Resolved with Sequelae]
  - Lymphangioleiomyomatosis [None]

NARRATIVE: CASE EVENT DATE: 20240408
